FAERS Safety Report 18599192 (Version 3)
Quarter: 2021Q1

REPORT INFORMATION
  Report Type: Spontaneous
  Country: US (occurrence: US)
  Receive Date: 20201210
  Receipt Date: 20210114
  Transmission Date: 20210419
  Serious: No
  Sender: FDA-Public Use
  Company Number: US-SA-2020SA349223

PATIENT
  Age: 29 Year
  Sex: Female

DRUGS (1)
  1. LOVENOX [Suspect]
     Active Substance: ENOXAPARIN SODIUM
     Indication: FACTOR V LEIDEN CARRIER
     Dosage: 40 MG

REACTIONS (4)
  - Needle issue [Unknown]
  - Exposure during pregnancy [Unknown]
  - COVID-19 [Unknown]
  - Injection site pain [Unknown]
